FAERS Safety Report 16722559 (Version 1)
Quarter: 2019Q3

REPORT INFORMATION
  Report Type: Spontaneous
  Country: US (occurrence: US)
  Receive Date: 20190820
  Receipt Date: 20190820
  Transmission Date: 20191005
  Serious: Yes (Other)
  Sender: FDA-Public Use
  Company Number: US-VIFOR (INTERNATIONAL) INC.-VIT-2019-08195

PATIENT
  Age: 78 Year
  Sex: Female

DRUGS (11)
  1. MIRCERA [Suspect]
     Active Substance: METHOXY POLYETHYLENE GLYCOL-EPOETIN BETA
     Route: 058
     Dates: start: 20190729
  2. ARANESP [Suspect]
     Active Substance: DARBEPOETIN ALFA
     Route: 058
     Dates: start: 20180109, end: 20180120
  3. ARANESP [Suspect]
     Active Substance: DARBEPOETIN ALFA
     Route: 058
     Dates: start: 20171016, end: 20171118
  4. ARANESP [Suspect]
     Active Substance: DARBEPOETIN ALFA
     Route: 058
     Dates: start: 20171127, end: 20171226
  5. PHENYTOIN. [Concomitant]
     Active Substance: PHENYTOIN
     Indication: SEIZURE
     Dates: start: 20170802
  6. PHENYTOIN. [Concomitant]
     Active Substance: PHENYTOIN
     Dates: start: 20180103
  7. MIRCERA [Suspect]
     Active Substance: METHOXY POLYETHYLENE GLYCOL-EPOETIN BETA
     Indication: NEPHROGENIC ANAEMIA
     Route: 058
     Dates: start: 20180126, end: 20180213
  8. MIRCERA [Suspect]
     Active Substance: METHOXY POLYETHYLENE GLYCOL-EPOETIN BETA
     Route: 058
     Dates: start: 20180223
  9. ARANESP [Suspect]
     Active Substance: DARBEPOETIN ALFA
     Indication: NEPHROGENIC ANAEMIA
     Route: 058
     Dates: start: 20170821, end: 20170908
  10. MIRCERA [Suspect]
     Active Substance: METHOXY POLYETHYLENE GLYCOL-EPOETIN BETA
     Route: 058
     Dates: start: 20190812
  11. ARANESP [Suspect]
     Active Substance: DARBEPOETIN ALFA
     Route: 058
     Dates: start: 20170918, end: 20171006

REACTIONS (2)
  - Haemoglobin decreased [Unknown]
  - Aplasia pure red cell [Unknown]

NARRATIVE: CASE EVENT DATE: 201908
